FAERS Safety Report 5186296-X (Version None)
Quarter: 2006Q4

REPORT INFORMATION
  Report Type: 
  Country: None (occurrence: None)
  Receive Date: 20061213
  Receipt Date: 20061129
  Transmission Date: 20070319
  Serious: Yes (Hospitalization)
  Sender: FDA-Public Use
  Company Number: 150548ISR

PATIENT
  Age: 75 Year
  Sex: Female

DRUGS (1)
  1. TRIMETHOPRIM [Suspect]
     Indication: URINARY TRACT INFECTION
     Dosage: 400 MG (200 MG, 2 IN 1 D), ORAL
     Route: 048
     Dates: start: 20061030, end: 20061106

REACTIONS (2)
  - HYPERKALAEMIA [None]
  - RENAL FAILURE ACUTE [None]
